FAERS Safety Report 19154687 (Version 1)
Quarter: 2021Q2

REPORT INFORMATION
  Report Type: Spontaneous
  Country: CN (occurrence: CN)
  Receive Date: 20210419
  Receipt Date: 20210419
  Transmission Date: 20210717
  Serious: Yes (Other)
  Sender: FDA-Public Use
  Company Number: CN-PFIZER INC-2021395225

PATIENT
  Age: 59 Year
  Sex: Female
  Weight: 50 kg

DRUGS (5)
  1. NORVASC [Suspect]
     Active Substance: AMLODIPINE BESYLATE
     Indication: HYPERTENSION
     Dosage: 5.000 MG, 1X/DAY
     Route: 048
     Dates: start: 20210326, end: 20210331
  2. SULPERAZON [Concomitant]
     Active Substance: CEFOPERAZONE SODIUM\SULBACTAM SODIUM
     Indication: PNEUMONIA
     Dosage: 3.000 G, 2X/DAY
     Route: 041
     Dates: start: 20210325, end: 20210328
  3. APROVEL [Suspect]
     Active Substance: IRBESARTAN
     Indication: HYPERTENSION
     Dosage: 0.150000 G, 1X/DAY
     Route: 048
     Dates: start: 20210326, end: 20210328
  4. METHYLPREDNISOLONE SODIUM SUCCINATE. [Concomitant]
     Active Substance: METHYLPREDNISOLONE SODIUM SUCCINATE
     Indication: PNEUMONIA
     Dosage: 40.000 MG, 1X/DAY
     Route: 041
     Dates: start: 20210325, end: 20210331
  5. NI FU DA [Concomitant]
     Indication: HYPERTENSION
     Dosage: 20.000 MG, 1X/DAY
     Route: 048
     Dates: start: 20210315, end: 20210328

REACTIONS (3)
  - Vomiting [Recovered/Resolved]
  - Nausea [Recovered/Resolved]
  - Gastric dilatation [Recovered/Resolved]

NARRATIVE: CASE EVENT DATE: 20210327
